FAERS Safety Report 7926901-5 (Version None)
Quarter: 2011Q4

REPORT INFORMATION
  Report Type: 
  Country: None (occurrence: None)
  Receive Date: 20111118
  Receipt Date: 20111115
  Transmission Date: 20120403
  Serious: Yes (Hospitalization)
  Sender: FDA-Public Use
  Company Number: PL-PFIZER INC-2006080337

PATIENT
  Age: 79 Year
  Sex: Female
  Weight: 74 kg

DRUGS (3)
  1. MOLSIDOMINE [Concomitant]
     Route: 048
     Dates: start: 20060607
  2. SUNITINIB MALATE [Suspect]
     Indication: METASTATIC RENAL CELL CARCINOMA
     Dosage: 50 MG, 1X/DAY, CYCLIC 4/2
     Route: 048
     Dates: start: 20060522, end: 20060618
  3. EFFOX LONG [Concomitant]
     Route: 048
     Dates: start: 20060607

REACTIONS (1)
  - HYPOTONIA [None]
